FAERS Safety Report 8409670 (Version 2)
Quarter: 2013Q2

REPORT INFORMATION
  Report Type: Spontaneous
  Country: US (occurrence: US)
  Receive Date: 20120216
  Receipt Date: 20130401
  Transmission Date: 20140414
  Serious: Yes (Other)
  Sender: FDA-Public Use
  Company Number: PHEH2011US011092

PATIENT
  Age: 63 Year
  Sex: Female
  Weight: 65.3 kg

DRUGS (6)
  1. RECLAST [Suspect]
     Indication: OSTEOPOROSIS
     Dosage: 5 MG
     Route: 042
     Dates: start: 20101207
  2. RECLAST [Suspect]
     Dosage: 5 MG
     Route: 042
     Dates: start: 20111226
  3. JANUVIA [Concomitant]
     Dosage: 100 G, UNK
     Route: 048
  4. LISINOPRIL [Concomitant]
     Dosage: 10 G, UNK
     Route: 048
  5. METFORMIN [Concomitant]
     Dosage: UNK UKN, UNK
     Route: 048
  6. LOSARTAN [Concomitant]
     Dosage: UNK UKN, UNK
     Route: 048

REACTIONS (2)
  - Fall [Unknown]
  - Hip fracture [Recovering/Resolving]
